FAERS Safety Report 10071019 (Version 2)
Quarter: 2014Q2

REPORT INFORMATION
  Report Type: Spontaneous
  Country: JP (occurrence: JP)
  Receive Date: 20140410
  Receipt Date: 20140415
  Transmission Date: 20141212
  Serious: Yes (Other)
  Sender: FDA-Public Use
  Company Number: JP-B.I. PHARMACEUTICALS,INC./RIDGEFIELD-2014-BI-16192NB

PATIENT
  Age: 77 Year
  Sex: Male

DRUGS (10)
  1. SPIRIVA [Suspect]
     Indication: CHRONIC OBSTRUCTIVE PULMONARY DISEASE
     Dosage: 18 MCG
     Route: 055
     Dates: end: 20140401
  2. HOKUNALIN [Suspect]
     Indication: EMPHYSEMA
     Dosage: 2 MG
     Route: 065
  3. LENDORMIN / BROTIZOLAM [Concomitant]
     Indication: INSOMNIA
     Dosage: 0.25 MG
     Route: 048
  4. DIOVAN / VALSARTAN [Concomitant]
     Indication: HYPERTENSION
     Dosage: 80 MG
     Route: 048
  5. ALDACTONE A / SPIRONOLACTONE [Concomitant]
     Indication: HYPERTENSION
     Dosage: 25 MG
     Route: 048
  6. ADALAT-CR / NIFEDIPINE [Concomitant]
     Indication: HYPERTENSION
     Dosage: 20 MG
     Route: 048
  7. LIPITOR / ATORVASTATIN CALCIUM HYDRATE [Concomitant]
     Indication: HYPERCHOLESTEROLAEMIA
     Dosage: 10 MG
     Route: 048
  8. HYPEN / ETODOLAC [Concomitant]
     Indication: RHEUMATOID ARTHRITIS
     Dosage: 200 MG
     Route: 048
  9. MUCOSTA / REBAMIPIDE [Concomitant]
     Indication: GASTRIC ULCER
     Dosage: 100 MG
     Route: 048
  10. MAGMITT / MAGNESIUM OXIDE [Concomitant]
     Indication: GASTRITIS
     Dosage: 330 MG
     Route: 048

REACTIONS (3)
  - Fracture [Recovered/Resolved]
  - Urinary retention [Recovered/Resolved]
  - Fall [Recovered/Resolved]
